FAERS Safety Report 17328135 (Version 5)
Quarter: 2020Q4

REPORT INFORMATION
  Report Type: Report from Study
  Country: US (occurrence: US)
  Receive Date: 20200127
  Receipt Date: 20201026
  Transmission Date: 20210113
  Serious: Yes (Other)
  Sender: FDA-Public Use
  Company Number: US-BIOGEN-2020BI00830336

PATIENT
  Age: 47 Year
  Sex: Male

DRUGS (6)
  1. TECFIDERA [Suspect]
     Active Substance: DIMETHYL FUMARATE
     Dosage: STARTING DOSE
     Route: 048
  2. TECFIDERA [Suspect]
     Active Substance: DIMETHYL FUMARATE
     Dosage: MAINTENANCE DOSE
     Route: 048
  3. TECFIDERA [Suspect]
     Active Substance: DIMETHYL FUMARATE
     Route: 065
     Dates: start: 20150102, end: 20160217
  4. TECFIDERA [Suspect]
     Active Substance: DIMETHYL FUMARATE
     Indication: MULTIPLE SCLEROSIS
     Dosage: TAKE 1 CAPSULE BY MOUTH TWICE DAILY
     Route: 048
     Dates: start: 201704
  5. CIALIS [Concomitant]
     Active Substance: TADALAFIL
     Indication: PRODUCT USED FOR UNKNOWN INDICATION
     Route: 065
  6. TECFIDERA [Suspect]
     Active Substance: DIMETHYL FUMARATE
     Route: 048
     Dates: start: 20160217

REACTIONS (3)
  - Renal cyst [Unknown]
  - Vitamin D decreased [Unknown]
  - Hodgkin^s disease [Recovered/Resolved]

NARRATIVE: CASE EVENT DATE: 201907
